FAERS Safety Report 20899453 (Version 3)
Quarter: 2022Q2

REPORT INFORMATION
  Report Type: Report from Study
  Country: US (occurrence: US)
  Receive Date: 20220601
  Receipt Date: 20220623
  Transmission Date: 20220721
  Serious: Yes (Other)
  Sender: FDA-Public Use
  Company Number: US-JNJFOC-20220547425

PATIENT
  Sex: Female

DRUGS (3)
  1. STELARA [Suspect]
     Active Substance: USTEKINUMAB
     Indication: Crohn^s disease
     Dates: start: 2019
  2. STELARA [Suspect]
     Active Substance: USTEKINUMAB
     Route: 058
  3. STELARA [Suspect]
     Active Substance: USTEKINUMAB

REACTIONS (6)
  - Depressed level of consciousness [Unknown]
  - Infusion related reaction [Unknown]
  - Malaise [Unknown]
  - Back pain [Unknown]
  - Off label use [Unknown]
  - Drug ineffective [Unknown]
